FAERS Safety Report 16104261 (Version 1)
Quarter: 2019Q1

REPORT INFORMATION
  Report Type: Spontaneous
  Country: FR (occurrence: FR)
  Receive Date: 20190322
  Receipt Date: 20190322
  Transmission Date: 20190418
  Serious: Yes (Hospitalization)
  Sender: FDA-Public Use
  Company Number: FR-BAUSCH-BL-2019-008522

PATIENT
  Age: 41 Year
  Sex: Female
  Weight: 47 kg

DRUGS (5)
  1. SERESTA [Suspect]
     Active Substance: OXAZEPAM
     Indication: POISONING DELIBERATE
     Dosage: SCORED TABLET; 80 DOSAGE FORM IN TOTAL
     Route: 048
     Dates: start: 20190207, end: 20190207
  2. VENLAFAXINE [Suspect]
     Active Substance: VENLAFAXINE HYDROCHLORIDE
     Indication: POISONING DELIBERATE
     Dosage: 1500 MG IN TOTAL
     Route: 048
     Dates: start: 20190207, end: 20190207
  3. LORMETAZEPAM [Suspect]
     Active Substance: LORMETAZEPAM
     Indication: POISONING DELIBERATE
     Dosage: 112 MG IN TOTAL
     Route: 048
     Dates: start: 20190207, end: 20190207
  4. THERALENE [Suspect]
     Active Substance: TRIMEPRAZINE
     Indication: POISONING DELIBERATE
     Dosage: 5 MG, SCORED FILM-COATED TABLET; 75 DOSAGE FORM IN TOTAL
     Route: 048
     Dates: start: 20190207, end: 20190207
  5. ARIPIPRAZOLE. [Suspect]
     Active Substance: ARIPIPRAZOLE
     Indication: POISONING DELIBERATE
     Dosage: 540 MG IN TOTAL
     Route: 048
     Dates: start: 20190207, end: 20190207

REACTIONS (7)
  - Hypothermia [Recovered/Resolved]
  - Sedation [Recovering/Resolving]
  - Rhabdomyolysis [Recovered/Resolved]
  - Bladder dilatation [Recovered/Resolved]
  - Hypotonia [Recovering/Resolving]
  - Bradycardia [Recovered/Resolved]
  - Pneumonia aspiration [Recovered/Resolved]

NARRATIVE: CASE EVENT DATE: 20190207
